FAERS Safety Report 6369833-9 (Version None)
Quarter: 2009Q3

REPORT INFORMATION
  Report Type: 
  Country: None (occurrence: None)
  Receive Date: 20090923
  Receipt Date: 20090915
  Transmission Date: 20100115
  Serious: Yes (Other)
  Sender: FDA-Public Use
  Company Number: BR-BRISTOL-MYERS SQUIBB COMPANY-14786396

PATIENT
  Age: 80 Year
  Sex: Male
  Weight: 74 kg

DRUGS (2)
  1. APROVEL TABS 300 MG [Suspect]
     Indication: HYPERTENSION
     Dosage: 1DF=0.5TABLET
     Route: 048
     Dates: start: 20040101
  2. SPLENDIL [Suspect]
     Indication: HYPERTENSION
     Dosage: 1DF=1TABLET;FORM:TABLET
     Route: 048
     Dates: start: 20040101

REACTIONS (2)
  - DIARRHOEA [None]
  - SKIN CANCER [None]
